FAERS Safety Report 4295229-X (Version None)
Quarter: 2004Q1

REPORT INFORMATION
  Report Type: 
  Country: None (occurrence: None)
  Receive Date: 20040216
  Receipt Date: 20030415
  Transmission Date: 20041129
  Serious: No
  Sender: FDA-Public Use
  Company Number: US-GLAXOSMITHKLINE-A0405298A

PATIENT
  Age: 6 Year
  Sex: Male
  Weight: 21.5 kg

DRUGS (1)
  1. LAMICTAL [Suspect]
     Route: 048
     Dates: start: 20021001

REACTIONS (3)
  - DRUG INEFFECTIVE [None]
  - ORAL MUCOSAL BLISTERING [None]
  - RASH GENERALISED [None]
